FAERS Safety Report 13170169 (Version 1)
Quarter: 2017Q1

REPORT INFORMATION
  Report Type: Spontaneous
  Country: SG (occurrence: SG)
  Receive Date: 20170131
  Receipt Date: 20170131
  Transmission Date: 20170428
  Serious: Yes (Hospitalization, Other)
  Sender: FDA-Public Use
  Company Number: SG-MYLANLABS-2017M1005441

PATIENT

DRUGS (3)
  1. COTRIMOXAZOLE [Interacting]
     Active Substance: SULFAMETHOXAZOLE\TRIMETHOPRIM
     Indication: URINARY TRACT INFECTION
     Route: 065
  2. GLIPIZIDE. [Suspect]
     Active Substance: GLIPIZIDE
     Dosage: 2.5 MG IN THE MORNING
     Route: 065
  3. GLIPIZIDE. [Suspect]
     Active Substance: GLIPIZIDE
     Indication: TYPE 2 DIABETES MELLITUS
     Dosage: 5 MG IN THE MORNING
     Route: 065

REACTIONS (2)
  - Drug interaction [Recovered/Resolved]
  - Hypoglycaemic seizure [Recovered/Resolved]
